FAERS Safety Report 5642261-7 (Version None)
Quarter: 2008Q1

REPORT INFORMATION
  Report Type: 
  Country: None (occurrence: None)
  Receive Date: 20080225
  Receipt Date: 20080208
  Transmission Date: 20080703
  Serious: Yes (Other)
  Sender: FDA-Public Use
  Company Number: HP200800006

PATIENT
  Age: 20 Month
  Sex: Male

DRUGS (2)
  1. AKNE-MYCIN [Suspect]
     Indication: CONJUNCTIVITIS
     Dosage: BID, OPTHALMIC
     Route: 047
     Dates: start: 20080207, end: 20080207
  2. ACETAMINOPHEN [Concomitant]

REACTIONS (4)
  - EYE IRRITATION [None]
  - EYE SWELLING [None]
  - LACRIMATION INCREASED [None]
  - WRONG DRUG ADMINISTERED [None]
